FAERS Safety Report 16297416 (Version 1)
Quarter: 2019Q2

REPORT INFORMATION
  Report Type: Spontaneous
  Country: ES (occurrence: ES)
  Receive Date: 20190510
  Receipt Date: 20190510
  Transmission Date: 20190711
  Serious: Yes (Disabling)
  Sender: FDA-Public Use
  Company Number: ES-AUROBINDO-AUR-APL-2019-024772

PATIENT

DRUGS (4)
  1. ALPRAZOLAM. [Suspect]
     Active Substance: ALPRAZOLAM
     Indication: ANXIETY
     Dosage: 0,25 POR LA MA?ANA, Y A VECES POR LA TARDE NOCHE
     Route: 065
     Dates: start: 20190409
  2. ESCITALOPRAM 10 MG FILM-COATED TABLETS EFG [Suspect]
     Active Substance: ESCITALOPRAM OXALATE
     Indication: ANXIETY
     Dosage: 5MG DIARIOS
     Route: 065
     Dates: start: 20190411
  3. RHODIOLA [Concomitant]
     Active Substance: HERBALS
     Indication: ANXIETY
     Dosage: UNK
     Route: 065
     Dates: start: 20190304, end: 20190331
  4. PANTOPRAZOL [Concomitant]
     Active Substance: PANTOPRAZOLE SODIUM
     Indication: ABDOMINAL DISCOMFORT
     Dosage: 1 AL D?A
     Route: 065
     Dates: start: 20190318, end: 20190407

REACTIONS (5)
  - Palpitations [Not Recovered/Not Resolved]
  - Feeling abnormal [Not Recovered/Not Resolved]
  - Somnolence [Not Recovered/Not Resolved]
  - Disturbance in attention [Not Recovered/Not Resolved]
  - Derealisation [Not Recovered/Not Resolved]

NARRATIVE: CASE EVENT DATE: 20190411
